FAERS Safety Report 6615487-3 (Version None)
Quarter: 2010Q1

REPORT INFORMATION
  Report Type: 
  Country: None (occurrence: None)
  Receive Date: 20100301
  Receipt Date: 20100219
  Transmission Date: 20100710
  Serious: Yes (Other)
  Sender: FDA-Public Use
  Company Number: 2010SP010517

PATIENT
  Age: 70 Year
  Sex: Male

DRUGS (1)
  1. TEMODAL [Suspect]
     Indication: BRAIN NEOPLASM
     Dosage: ; PO
     Route: 048

REACTIONS (2)
  - RETINAL ARTERY OCCLUSION [None]
  - UVEITIS [None]
